FAERS Safety Report 5055451-1 (Version None)
Quarter: 2006Q3

REPORT INFORMATION
  Report Type: 
  Country: None (occurrence: None)
  Receive Date: 20060714
  Receipt Date: 20060626
  Transmission Date: 20061208
  Serious: Yes (Life-Threatening, Hospitalization, Disabling, Other)
  Sender: FDA-Public Use
  Company Number: DE200606005326

PATIENT
  Age: 55 Year
  Sex: Female
  Weight: 75 kg

DRUGS (3)
  1. CYMBALTA [Suspect]
     Indication: DEPRESSION
     Dosage: 30 MG, DAILY (1/D), ORAL
     Route: 048
     Dates: start: 20050523, end: 20050101
  2. TRANXILIUM      /GFR/(CLORAZEPATE DIPOTASSIUM) [Concomitant]
  3. PERAZINE (PERAZINE) [Concomitant]

REACTIONS (6)
  - CORONARY ARTERY DISEASE [None]
  - DIABETES MELLITUS NON-INSULIN-DEPENDENT [None]
  - MYOCARDIAL INFARCTION [None]
  - PALPITATIONS [None]
  - PANIC ATTACK [None]
  - PULMONARY HYPERTENSION [None]
